FAERS Safety Report 7390348-3 (Version None)
Quarter: 2011Q1

REPORT INFORMATION
  Report Type: 
  Country: None (occurrence: None)
  Receive Date: 20110325
  Receipt Date: 20110317
  Transmission Date: 20110831
  Serious: Yes (Death)
  Sender: FDA-Public Use
  Company Number: 2011MA002571

PATIENT
  Age: 30 Year
  Sex: Female

DRUGS (2)
  1. DIPHENHYDRAMINE [Concomitant]
  2. OXYCODONE HCL [Suspect]

REACTIONS (2)
  - ACCIDENTAL POISONING [None]
  - DRUG ADMINISTRATION ERROR [None]
